FAERS Safety Report 8544673-0 (Version None)
Quarter: 2012Q3

REPORT INFORMATION
  Report Type: 
  Country: None (occurrence: None)
  Receive Date: 20120727
  Receipt Date: 20120724
  Transmission Date: 20120928
  Serious: Yes (Other)
  Sender: FDA-Public Use
  Company Number: CA-ROCHE-1085770

PATIENT
  Sex: Male
  Weight: 89.892 kg

DRUGS (10)
  1. EZETIMIBE [Concomitant]
  2. TRENTAL [Concomitant]
  3. AVASTIN [Suspect]
     Indication: NON-SMALL CELL LUNG CANCER STAGE IV
     Route: 042
     Dates: start: 20120601, end: 20120712
  4. SYMBICORT [Concomitant]
  5. DECADRON [Concomitant]
  6. FLOMAX [Concomitant]
  7. LASIX [Concomitant]
  8. CRESTOR [Concomitant]
  9. SPIRIVA [Concomitant]
  10. FRAGMIN [Concomitant]

REACTIONS (5)
  - CONFUSIONAL STATE [None]
  - DRUG INEFFECTIVE [None]
  - METASTASES TO BONE [None]
  - METASTASES TO LIVER [None]
  - HEADACHE [None]
